FAERS Safety Report 17947867 (Version 1)
Quarter: 2020Q2

REPORT INFORMATION
  Report Type: Spontaneous
  Country: US (occurrence: US)
  Receive Date: 20200625
  Receipt Date: 20200625
  Transmission Date: 20200714
  Serious: Yes (Other)
  Sender: FDA-Public Use
  Company Number: US-PURDUE-USA-2020-0155721

PATIENT

DRUGS (4)
  1. SUBOXONE [Suspect]
     Active Substance: BUPRENORPHINE HYDROCHLORIDE\NALOXONE HYDROCHLORIDE
     Indication: PRODUCT USED FOR UNKNOWN INDICATION
     Dosage: UNKNOWN
     Route: 065
     Dates: end: 2010
  2. MORPHINE SULFATE (SIMILAR TO NDA 19-516) [Suspect]
     Active Substance: MORPHINE SULFATE
     Indication: GASTROINTESTINAL DISORDER
     Dosage: UNKNOWN
     Route: 065
     Dates: end: 2010
  3. PERCOCET                           /00446701/ [Suspect]
     Active Substance: ACETAMINOPHEN\OXYCODONE HYDROCHLORIDE\OXYCODONE TEREPHTHALATE
     Indication: GASTROINTESTINAL DISORDER
     Dosage: UNKNOWN
     Route: 065
     Dates: end: 2010
  4. CODEINE [Suspect]
     Active Substance: CODEINE
     Indication: GASTROINTESTINAL DISORDER
     Dosage: UNKNOWN
     Route: 065
     Dates: end: 2010

REACTIONS (2)
  - Tooth loss [Unknown]
  - Drug dependence [Unknown]

NARRATIVE: CASE EVENT DATE: 2010
